FAERS Safety Report 7481269-6 (Version None)
Quarter: 2011Q2

REPORT INFORMATION
  Report Type: 
  Country: None (occurrence: None)
  Receive Date: 20110505
  Receipt Date: 20110428
  Transmission Date: 20111010
  Serious: Yes (Other)
  Sender: FDA-Public Use
  Company Number: RB-24601-2011

PATIENT
  Age: 73 Year
  Sex: Male

DRUGS (1)
  1. MUCINEX [Suspect]
     Indication: NASOPHARYNGITIS
     Dosage: 1200 MG, QD, ORAL
     Route: 048

REACTIONS (1)
  - EPISTAXIS [None]
